FAERS Safety Report 7519014-8 (Version None)
Quarter: 2011Q2

REPORT INFORMATION
  Report Type: 
  Country: None (occurrence: None)
  Receive Date: 20110602
  Receipt Date: 20110531
  Transmission Date: 20111010
  Serious: Yes (Other)
  Sender: FDA-Public Use
  Company Number: US-PFIZER INC-2011117700

PATIENT
  Sex: Male

DRUGS (1)
  1. LIPITOR [Suspect]
     Dosage: UNK

REACTIONS (7)
  - BACK PAIN [None]
  - GROIN PAIN [None]
  - PAIN [None]
  - ABASIA [None]
  - PAIN IN EXTREMITY [None]
  - ARTHRALGIA [None]
  - MOVEMENT DISORDER [None]
